FAERS Safety Report 16073659 (Version 2)
Quarter: 2019Q2

REPORT INFORMATION
  Report Type: Spontaneous
  Country: US (occurrence: US)
  Receive Date: 20190314
  Receipt Date: 20190614
  Transmission Date: 20190711
  Serious: Yes (Other)
  Sender: FDA-Public Use
  Company Number: US-PFIZER INC-2019107287

PATIENT
  Age: 60 Year
  Sex: Female

DRUGS (1)
  1. FENTANYL CITRATE. [Suspect]
     Active Substance: FENTANYL CITRATE
     Dosage: UNK

REACTIONS (6)
  - Insomnia [Unknown]
  - Anaphylactic reaction [Unknown]
  - Delirium [Unknown]
  - Rash [Unknown]
  - Dizziness [Unknown]
  - Drug hypersensitivity [Unknown]
